FAERS Safety Report 14875053 (Version 2)
Quarter: 2018Q2

REPORT INFORMATION
  Report Type: Spontaneous
  Country: US (occurrence: JP)
  Receive Date: 20180510
  Receipt Date: 20180517
  Transmission Date: 20180711
  Serious: Yes (Death, Life-Threatening, Hospitalization)
  Sender: FDA-Public Use
  Company Number: JP-CELGENEUS-JPN-20180502558

PATIENT
  Age: 78 Year
  Sex: Female
  Weight: 36 kg

DRUGS (13)
  1. VENETOCLAX. [Suspect]
     Active Substance: VENETOCLAX
     Indication: HAEMATOLOGICAL MALIGNANCY
     Dosage: 100 MILLIGRAM
     Route: 048
     Dates: start: 20171003, end: 20171003
  2. VENETOCLAX. [Suspect]
     Active Substance: VENETOCLAX
     Dosage: 400 MILLIGRAM
     Route: 048
     Dates: start: 20171005, end: 20180405
  3. SODIUM PICOSULFATE [Concomitant]
     Active Substance: SODIUM PICOSULFATE
     Indication: CONSTIPATION
     Dosage: 1 APPLICATION
     Route: 048
     Dates: start: 20171018, end: 20180501
  4. SODIUM GUALENATE [Concomitant]
     Active Substance: SODIUM GUALENATE
     Indication: LARYNGEAL PAIN
     Dosage: 1 OTHER
     Route: 060
     Dates: start: 20170924, end: 20180501
  5. OLOPATADINE HYDROCHLORIDE. [Concomitant]
     Active Substance: OLOPATADINE HYDROCHLORIDE
     Indication: CONJUNCTIVITIS
     Dosage: 1 APPLICATION
     Route: 047
     Dates: start: 20180228, end: 20180501
  6. HARTMANN-G3 [Concomitant]
     Dosage: 1 LITERS
     Route: 065
     Dates: start: 20171007, end: 20171007
  7. SOLITA-T1 [Concomitant]
     Indication: PROPHYLAXIS
     Dosage: 1 LITERS
     Route: 065
     Dates: start: 20171002, end: 20171006
  8. HARTMANN-G3 [Concomitant]
     Indication: PROPHYLAXIS
     Dosage: .5 LITERS
     Route: 065
     Dates: start: 20171001, end: 20171001
  9. VIDAZA [Suspect]
     Active Substance: AZACITIDINE
     Indication: HAEMATOLOGICAL MALIGNANCY
     Dosage: 75 MILLIGRAM/SQ. METER
     Route: 058
     Dates: start: 20171002, end: 20180320
  10. GRANISETRON HYDROCHLORIDE. [Concomitant]
     Active Substance: GRANISETRON HYDROCHLORIDE
     Indication: NAUSEA
     Dosage: 2 MILLIGRAM
     Route: 048
     Dates: start: 20171002, end: 20180320
  11. MAGNESIUM OXIDE. [Concomitant]
     Active Substance: MAGNESIUM OXIDE
     Indication: CONSTIPATION
     Dosage: 500 MILLIGRAM
     Route: 048
     Dates: start: 20171012, end: 20180501
  12. VENETOCLAX. [Suspect]
     Active Substance: VENETOCLAX
     Dosage: 200 MILLIGRAM
     Route: 048
     Dates: start: 20171004, end: 20171004
  13. ALLOPURINOL SODIUM. [Concomitant]
     Active Substance: ALLOPURINOL SODIUM
     Indication: PROPHYLAXIS
     Dosage: 200 MILLIGRAM
     Route: 065
     Dates: start: 20170929, end: 20171018

REACTIONS (2)
  - Cerebral haemorrhage [Fatal]
  - Cerebral haemorrhage [Unknown]

NARRATIVE: CASE EVENT DATE: 20180501
